FAERS Safety Report 8433049-2 (Version None)
Quarter: 2012Q2

REPORT INFORMATION
  Report Type: 
  Country: None (occurrence: None)
  Receive Date: 20120323
  Receipt Date: 20110531
  Transmission Date: 20120825
  Serious: Yes (Other)
  Sender: FDA-Public Use
  Company Number: 163-21880-11060318

PATIENT
  Age: 69 Year
  Sex: Female
  Weight: 119 kg

DRUGS (3)
  1. REVLIMID [Suspect]
     Indication: MULTIPLE MYELOMA
     Dosage: 5 MG, DAILY X 21 DAYS, PO, 10 MG, DAILY X 21 DAYS, PO, 15 MG, DAILY X 21 DAYS, PO
     Route: 048
     Dates: start: 20100401
  2. REVLIMID [Suspect]
     Indication: MULTIPLE MYELOMA
     Dosage: 5 MG, DAILY X 21 DAYS, PO, 10 MG, DAILY X 21 DAYS, PO, 15 MG, DAILY X 21 DAYS, PO
     Route: 048
     Dates: start: 20091210
  3. REVLIMID [Suspect]
     Indication: MULTIPLE MYELOMA
     Dosage: 5 MG, DAILY X 21 DAYS, PO, 10 MG, DAILY X 21 DAYS, PO, 15 MG, DAILY X 21 DAYS, PO
     Route: 048
     Dates: start: 20110101

REACTIONS (3)
  - PLATELET COUNT DECREASED [None]
  - RED BLOOD CELL COUNT DECREASED [None]
  - FATIGUE [None]
